FAERS Safety Report 6376048-7 (Version None)
Quarter: 2009Q3

REPORT INFORMATION
  Report Type: 
  Country: None (occurrence: None)
  Receive Date: 20090924
  Receipt Date: 20090922
  Transmission Date: 20100115
  Serious: Yes (Death)
  Sender: FDA-Public Use
  Company Number: PHHY2009GB40620

PATIENT
  Age: 34 Year
  Sex: Female

DRUGS (8)
  1. CLOZAPINE [Suspect]
     Indication: PERSONALITY DISORDER
     Dosage: 75 MG
     Route: 048
  2. GLIMEPIRIDE [Concomitant]
     Indication: DIABETES MELLITUS
     Dosage: 4 MG, QD
     Route: 048
  3. METFORMIN [Concomitant]
     Indication: DIABETES MELLITUS
     Dosage: 500 MG, TID
     Route: 048
  4. NORDETTE-28 [Concomitant]
  5. NOVOMIX [Concomitant]
  6. ORLISTAT [Concomitant]
  7. PAROXETINE HCL [Concomitant]
     Dosage: 20 MG, QD
     Route: 048
  8. SIMVASTATIN [Concomitant]

REACTIONS (1)
  - EMBOLISM VENOUS [None]
